FAERS Safety Report 9969531 (Version 1)
Quarter: 2014Q1

REPORT INFORMATION
  Report Type: Spontaneous
  Country: DE (occurrence: DE)
  Receive Date: 20140306
  Receipt Date: 20140306
  Transmission Date: 20141002
  Serious: Yes (Other)
  Sender: FDA-Public Use
  Company Number: DE-DRREDDYS-GER/GER/14/0038642

PATIENT
  Age: 30 Year
  Sex: Female
  Weight: 99 kg

DRUGS (3)
  1. VENLAFAXINE [Suspect]
     Indication: DEPRESSION
     Route: 048
     Dates: start: 20121010
  2. VENLAFAXINE [Suspect]
     Route: 048
     Dates: end: 20130702
  3. FOLIO FORTE [Concomitant]
     Indication: PROPHYLAXIS OF NEURAL TUBE DEFECT
     Route: 048

REACTIONS (3)
  - Gestational oedema [Unknown]
  - Caesarean section [Unknown]
  - Exposure during pregnancy [Unknown]
